FAERS Safety Report 13316837 (Version 1)
Quarter: 2017Q1

REPORT INFORMATION
  Report Type: Spontaneous
  Country: US (occurrence: US)
  Receive Date: 20170310
  Receipt Date: 20170310
  Transmission Date: 20170428
  Serious: Yes (Hospitalization, Other)
  Sender: FDA-Public Use
  Company Number: US-ACCORD-048857

PATIENT
  Age: 36 Year
  Sex: Female

DRUGS (9)
  1. MYCOPHENOLIC ACID. [Suspect]
     Active Substance: MYCOPHENOLIC ACID
     Indication: IMMUNOSUPPRESSANT DRUG THERAPY
     Dates: end: 2013
  2. PREDNISONE. [Suspect]
     Active Substance: PREDNISONE
     Indication: IMMUNOSUPPRESSANT DRUG THERAPY
  3. BUPROPION/BUPROPION HYDROCHLORIDE [Concomitant]
  4. TACROLIMUS. [Suspect]
     Active Substance: TACROLIMUS
     Indication: IMMUNOSUPPRESSANT DRUG THERAPY
     Dosage: 3 MG IN THE MORNING AND 2.5 MG IN THE EVENING
  5. SIROLIMUS. [Suspect]
     Active Substance: SIROLIMUS
     Indication: IMMUNOSUPPRESSANT DRUG THERAPY
     Dosage: 2 MG AND 1 MG ALTERNATING EVERY OTHER DAY
  6. TOPIRAMATE. [Concomitant]
     Active Substance: TOPIRAMATE
  7. WARFARIN [Concomitant]
     Active Substance: WARFARIN
     Indication: DEEP VEIN THROMBOSIS
     Dosage: 5 MG AND 7.5 MG ALTERNATING EVERY OTHER DAY
     Dates: start: 201412
  8. SULFAMETHOXAZOLE/TRIMETHOPRIM [Concomitant]
     Dosage: 800 MG TO 160 MG ON MONDAY, WEDNESDAY, AND FRIDAY
  9. VALGANCICLOVIR/VALGANCICLOVIR HYDROCHLORIDE [Concomitant]

REACTIONS (2)
  - Diarrhoea [Unknown]
  - Hypertriglyceridaemia [Recovering/Resolving]
